FAERS Safety Report 9869366 (Version 3)
Quarter: 2014Q1

REPORT INFORMATION
  Report Type: Spontaneous
  Country: US (occurrence: US)
  Receive Date: 20140205
  Receipt Date: 20140325
  Transmission Date: 20141002
  Serious: Yes (Hospitalization)
  Sender: FDA-Public Use
  Company Number: US-JNJFOC-20140119575

PATIENT
  Age: 78 Year
  Sex: Male
  Weight: 86.18 kg

DRUGS (11)
  1. XARELTO [Suspect]
     Indication: CEREBROVASCULAR ACCIDENT PROPHYLAXIS
     Dosage: FIRST DOSE 14-DEC
     Route: 048
     Dates: end: 20140126
  2. XARELTO [Suspect]
     Indication: ATRIAL FIBRILLATION
     Dosage: FIRST DOSE 14-DEC
     Route: 048
     Dates: end: 20140126
  3. ASPIRIN [Suspect]
     Indication: ANTIPLATELET THERAPY
     Route: 065
  4. INSULIN [Concomitant]
     Route: 065
  5. PLAQUENIL [Concomitant]
     Route: 065
  6. PREDNISONE [Concomitant]
     Route: 065
  7. MAGNESIUM OXIDE [Concomitant]
     Route: 065
  8. LASIX [Concomitant]
     Route: 065
  9. LISINOPRIL [Concomitant]
     Route: 065
  10. VERAPAMIL [Concomitant]
     Route: 065
  11. BACTRIM [Concomitant]
     Route: 065

REACTIONS (4)
  - Wound haemorrhage [Recovering/Resolving]
  - Haemoglobin decreased [Unknown]
  - Inappropriate schedule of drug administration [Unknown]
  - Fall [Unknown]
